FAERS Safety Report 6836227-9 (Version None)
Quarter: 2010Q3

REPORT INFORMATION
  Report Type: 
  Country: None (occurrence: None)
  Receive Date: 20100713
  Receipt Date: 20100702
  Transmission Date: 20110219
  Serious: Yes (Hospitalization)
  Sender: FDA-Public Use
  Company Number: FR-GENENTECH-303128

PATIENT
  Sex: Female

DRUGS (12)
  1. RITUXIMAB [Suspect]
     Indication: MANTLE CELL LYMPHOMA
     Dosage: UNK
     Route: 042
  2. RITUXIMAB [Suspect]
     Dosage: UNK
     Route: 042
     Dates: start: 20100511
  3. RITUXIMAB [Suspect]
     Dosage: 565 MG, UNK
     Route: 042
     Dates: start: 20100608
  4. CISPLATIN [Suspect]
     Indication: MANTLE CELL LYMPHOMA
     Dosage: UNK
     Route: 065
  5. CISPLATIN [Suspect]
     Dosage: UNK
     Route: 065
     Dates: start: 20100511
  6. CYTARABINE [Suspect]
     Indication: MANTLE CELL LYMPHOMA
     Dosage: UNK
     Route: 065
  7. CYTARABINE [Suspect]
     Dosage: UNK
     Route: 065
     Dates: start: 20100511
  8. CYTARABINE [Suspect]
     Dosage: 3 G, UNK
     Route: 065
     Dates: start: 20100609
  9. DEXAMETHASONE ACETATE [Suspect]
     Indication: MANTLE CELL LYMPHOMA
     Dosage: UNK
     Route: 042
  10. DEXAMETHASONE ACETATE [Suspect]
     Dosage: UNK
     Route: 042
     Dates: start: 20100512, end: 20100514
  11. DEXAMETHASONE ACETATE [Suspect]
     Route: 042
  12. CARBOPLATIN [Suspect]
     Indication: MANTLE CELL LYMPHOMA
     Dosage: 425 MG, UNK
     Route: 065
     Dates: start: 20100608

REACTIONS (4)
  - CONVULSION [None]
  - HEPATOCELLULAR INJURY [None]
  - HYPOCALCAEMIA [None]
  - HYPOKALAEMIA [None]
